FAERS Safety Report 5154457-1 (Version None)
Quarter: 2006Q4

REPORT INFORMATION
  Report Type: 
  Country: None (occurrence: None)
  Receive Date: 20061114
  Receipt Date: 20061101
  Transmission Date: 20070319
  Serious: Yes (Death, Life-Threatening, Other)
  Sender: FDA-Public Use
  Company Number: 2006115125

PATIENT
  Age: 68 Year
  Sex: Male
  Weight: 40 kg

DRUGS (11)
  1. ZYVOX [Suspect]
     Indication: STAPHYLOCOCCAL INFECTION
     Dosage: 1200 MG (600 MG, FREQUENCY:  BID, INTRAVENOUS
     Route: 042
     Dates: start: 20060908, end: 20060911
  2. CEFTAZIDIME             (CEFTAZIDIME) [Concomitant]
  3. FLUCONAZOLE [Concomitant]
  4. FOY               (GABEXATE MESILATE) [Concomitant]
  5. FINIBAX                      (DORIPENEM) [Concomitant]
  6. VANCOMYCIN HYDROCHLORIDE [Concomitant]
  7. PHENYTOIN [Concomitant]
  8. AMINOPHYLLIN [Concomitant]
  9. GLYPHAGEN C                         (AMINOACETIC ACID, CYSTEINE, GLYCY [Concomitant]
  10. CARBAZOCHROME SODIUM SULFONATE                 (CARBAZOCHROME SODIUM S [Concomitant]
  11. TARGOCID [Concomitant]

REACTIONS (12)
  - CONDITION AGGRAVATED [None]
  - DISSEMINATED INTRAVASCULAR COAGULATION [None]
  - GASTRIC ULCER [None]
  - GASTROINTESTINAL HAEMORRHAGE [None]
  - HICCUPS [None]
  - MELAENA [None]
  - NAUSEA [None]
  - PLATELET COUNT DECREASED [None]
  - PNEUMONIA STAPHYLOCOCCAL [None]
  - SERRATIA SEPSIS [None]
  - STRESS [None]
  - VOMITING [None]
